FAERS Safety Report 13272227 (Version 1)
Quarter: 2017Q1

REPORT INFORMATION
  Report Type: Other
  Country: NL (occurrence: NL)
  Receive Date: 20170227
  Receipt Date: 20170227
  Transmission Date: 20170428
  Serious: Yes (Life-Threatening, Hospitalization)
  Sender: FDA-Public Use
  Company Number: NL-LUPIN PHARMACEUTICALS INC.-2017-00823

PATIENT
  Age: 66 Year
  Sex: Male

DRUGS (4)
  1. METFORMIN [Suspect]
     Active Substance: METFORMIN HYDROCHLORIDE
     Indication: TYPE 2 DIABETES MELLITUS
     Dosage: 60 TABLETS CONTAINING 1000 MG METFORMIN
     Route: 048
  2. NIFEDIPINE. [Suspect]
     Active Substance: NIFEDIPINE
     Indication: HYPERTENSION
     Route: 048
  3. HYDROCHLOROTHIAZIDE. [Concomitant]
     Active Substance: HYDROCHLOROTHIAZIDE
     Indication: HYPERTENSION
     Route: 065
  4. GLIMEPIRIDE. [Concomitant]
     Active Substance: GLIMEPIRIDE
     Indication: TYPE 2 DIABETES MELLITUS
     Route: 048

REACTIONS (8)
  - Metabolic acidosis [Unknown]
  - Acute kidney injury [Unknown]
  - Shock [Unknown]
  - Hypotension [Unknown]
  - Hypoglycaemia [Unknown]
  - Suicide attempt [Unknown]
  - Toxicity to various agents [Unknown]
  - Overdose [Unknown]
